FAERS Safety Report 23652224 (Version 1)
Quarter: 2024Q1

REPORT INFORMATION
  Report Type: Spontaneous
  Country: IT (occurrence: IT)
  Receive Date: 20240320
  Receipt Date: 20240320
  Transmission Date: 20240410
  Serious: Yes (Hospitalization)
  Sender: FDA-Public Use
  Company Number: IT-MYLANLABS-2024M1025243

PATIENT
  Age: 46 Year
  Sex: Male

DRUGS (22)
  1. FOSFOMYCIN [Interacting]
     Active Substance: FOSFOMYCIN
     Indication: Respiratory tract infection
     Dosage: 16 GRAM, QD, INFUSION
     Route: 065
  2. FOSFOMYCIN [Interacting]
     Active Substance: FOSFOMYCIN
     Indication: Pseudomonas infection
  3. PIPERACILLIN SODIUM\TAZOBACTAM SODIUM [Interacting]
     Active Substance: PIPERACILLIN SODIUM\TAZOBACTAM SODIUM
     Indication: Respiratory tract infection
     Dosage: 16 GRAM, QD,  INFUSION
     Route: 065
  4. PIPERACILLIN SODIUM\TAZOBACTAM SODIUM [Interacting]
     Active Substance: PIPERACILLIN SODIUM\TAZOBACTAM SODIUM
     Indication: Pseudomonas infection
  5. MYCOPHENOLATE MOFETIL [Interacting]
     Active Substance: MYCOPHENOLATE MOFETIL
     Indication: Immunosuppressant drug therapy
     Dosage: 500?MG+1000 MG/DAY
     Route: 065
  6. LEVOFLOXACIN [Interacting]
     Active Substance: LEVOFLOXACIN
     Indication: Evidence based treatment
     Dosage: 500 MILLIGRAM, QD
     Route: 065
  7. AZITHROMYCIN [Interacting]
     Active Substance: AZITHROMYCIN
     Indication: Respiratory tract infection
     Dosage: 500 MILLIGRAM, QD
     Route: 048
  8. AZITHROMYCIN [Interacting]
     Active Substance: AZITHROMYCIN
     Indication: Pseudomonas infection
  9. SULFAMETHOXAZOLE\TRIMETHOPRIM [Interacting]
     Active Substance: SULFAMETHOXAZOLE\TRIMETHOPRIM
     Indication: Respiratory tract infection
     Dosage: UNK, BID,TRIMETHOPRIM 160MG+ SULFAMETHOXAZOLE 800MG TWICE DAILY
     Route: 065
  10. SULFAMETHOXAZOLE\TRIMETHOPRIM [Interacting]
     Active Substance: SULFAMETHOXAZOLE\TRIMETHOPRIM
     Indication: Pseudomonas infection
  11. CEPHALEXIN [Interacting]
     Active Substance: CEPHALEXIN
     Indication: Respiratory tract infection
     Dosage: 2 GRAM, TID, 2G THREE TIMES DAILY
     Route: 065
  12. CEPHALEXIN [Interacting]
     Active Substance: CEPHALEXIN
     Indication: Pseudomonas infection
     Dosage: 2 GRAM, TID, 2G THREE TIMES DAILY
     Route: 048
  13. AMIKACIN [Interacting]
     Active Substance: AMIKACIN
     Indication: Respiratory tract infection
     Dosage: 1 GRAM, QD
     Route: 042
  14. AMIKACIN [Interacting]
     Active Substance: AMIKACIN
     Indication: Pseudomonas infection
  15. MEROPENEM [Interacting]
     Active Substance: MEROPENEM
     Indication: Respiratory tract infection
     Dosage: 2 GRAM, TID, 2G THREE TIMES DAILY
     Route: 042
  16. MEROPENEM [Interacting]
     Active Substance: MEROPENEM
     Indication: Pseudomonas infection
  17. EVEROLIMUS [Concomitant]
     Active Substance: EVEROLIMUS
     Indication: Immunosuppressant drug therapy
     Dosage: 1.5 MILLIGRAM, BID
     Route: 065
  18. INSULIN GLARGINE [Concomitant]
     Active Substance: INSULIN GLARGINE
     Indication: Type 1 diabetes mellitus
     Dosage: UNK
     Route: 065
  19. INSULIN LISPRO [Concomitant]
     Active Substance: INSULIN LISPRO
     Indication: Type 1 diabetes mellitus
     Dosage: UNK
     Route: 065
  20. CALCIUM CARBONATE [Concomitant]
     Active Substance: CALCIUM CARBONATE
     Indication: Osteoporosis
     Dosage: UNK
     Route: 065
  21. CHOLECALCIFEROL [Concomitant]
     Active Substance: CHOLECALCIFEROL
     Indication: Osteoporosis
     Dosage: UNK
     Route: 065
  22. OSELTAMIVIR [Concomitant]
     Active Substance: OSELTAMIVIR
     Indication: H1N1 influenza
     Dosage: UNK
     Route: 065

REACTIONS (3)
  - Drug ineffective [Unknown]
  - Drug interaction [Recovered/Resolved]
  - Immunosuppressant drug level decreased [Recovered/Resolved]
